FAERS Safety Report 19271034 (Version 1)
Quarter: 2021Q2

REPORT INFORMATION
  Report Type: Spontaneous
  Country: US (occurrence: US)
  Receive Date: 20210518
  Receipt Date: 20210518
  Transmission Date: 20210717
  Serious: No
  Sender: FDA-Public Use
  Company Number: US-SA-2021SA157039

PATIENT
  Sex: Male

DRUGS (2)
  1. TOUJEO [Suspect]
     Active Substance: INSULIN GLARGINE
     Route: 065
  2. NOVOLIN 30R [INSULIN HUMAN;INSULIN HUMAN INJECTION, ISOPHANE] [Suspect]
     Active Substance: INSULIN HUMAN
     Route: 065

REACTIONS (1)
  - Blood glucose abnormal [Unknown]
